FAERS Safety Report 15349307 (Version 1)
Quarter: 2018Q3

REPORT INFORMATION
  Report Type: Spontaneous
  Country: JP (occurrence: JP)
  Receive Date: 20180904
  Receipt Date: 20180904
  Transmission Date: 20181010
  Serious: Yes (Other)
  Sender: FDA-Public Use
  Company Number: JP-PFIZER INC-2018344662

PATIENT
  Age: 83 Year
  Sex: Male

DRUGS (1)
  1. WYPAX [Suspect]
     Active Substance: LORAZEPAM
     Dosage: UNK
     Route: 048

REACTIONS (3)
  - Confusional state [Unknown]
  - Dementia [Unknown]
  - Somnambulism [Unknown]

NARRATIVE: CASE EVENT DATE: 201808
